FAERS Safety Report 9338748 (Version 2)
Quarter: 2014Q1

REPORT INFORMATION
  Report Type: Spontaneous
  Country: US (occurrence: US)
  Receive Date: 20130610
  Receipt Date: 20140226
  Transmission Date: 20141002
  Serious: Yes (Hospitalization, Other)
  Sender: FDA-Public Use
  Company Number: US-PFIZER INC-2013172289

PATIENT
  Age: 81 Year
  Sex: Female
  Weight: 75.28 kg

DRUGS (20)
  1. REVATIO [Suspect]
     Dosage: 20 MG, 3X/DAY
  2. WARFARIN [Concomitant]
     Dosage: 5 MG, 1X/DAY
  3. DIGOXIN [Concomitant]
     Dosage: 0.125 MG, 1X/DAY
  4. ALPRAZOLAM [Concomitant]
     Dosage: 0.25 MG, 3X/DAY
  5. ALLOPURINOL [Concomitant]
     Dosage: 10 MG, 1X/DAY
  6. BISACODYL [Concomitant]
     Dosage: 5 MG, 2X/DAY
  7. CELEPRA [Concomitant]
     Dosage: 20 MG, 1X/DAY
  8. COLECALCIFEROL [Concomitant]
     Dosage: 2000 IU, 1X/DAY
  9. LASIX [Concomitant]
     Dosage: 40 MG, 2X/DAY
  10. LEVEMIR [Concomitant]
     Dosage: UNK
  11. LYRICA [Concomitant]
     Dosage: 75 MG, 2X/DAY
  12. NOVOLOG [Concomitant]
     Dosage: UNK, 1X/DAY
  13. OMEPRAZOLE [Concomitant]
     Dosage: 20 MG, 1X/DAY
  14. COLCHICINE [Concomitant]
     Dosage: 0.6 MG, 1X/DAY
  15. NORCO [Concomitant]
     Dosage: 7.5MG/325 MG, 2X/DAY
  16. SPIRONOLACTONE [Concomitant]
     Dosage: 50 MG, 1X/DAY
  17. ZAROXOLYN [Concomitant]
     Dosage: UNK, 1X/DAY
  18. LANTUS [Concomitant]
     Dosage: UNK, 1X/DAY
  19. INSULIN [Concomitant]
     Dosage: 5 MG, 3X/DAY
  20. DIOVAN (VALSARTAN) [Concomitant]
     Dosage: 80 MG, 1X/DAY

REACTIONS (4)
  - Fluid retention [Unknown]
  - Oedema peripheral [Unknown]
  - Arthralgia [Unknown]
  - Abasia [Unknown]
